FAERS Safety Report 4826153-9 (Version None)
Quarter: 2005Q4

REPORT INFORMATION
  Report Type: 
  Country: None (occurrence: None)
  Receive Date: 20051111
  Receipt Date: 20051031
  Transmission Date: 20060501
  Serious: Yes (Hospitalization)
  Sender: FDA-Public Use
  Company Number: 05-GEN-086(LIT)

PATIENT
  Age: 43 Year
  Sex: Male

DRUGS (8)
  1. ACETAMINOPHEN [Suspect]
     Dosage: 16G PER DAY
     Route: 048
  2. AMLODIPINE [Suspect]
     Dosage: 560MG PER DAY
     Route: 048
  3. FLUOXETINE [Suspect]
     Route: 048
  4. CITALOPRAM [Suspect]
     Dosage: 280MG PER DAY
     Route: 048
  5. PERINDOPRIL [Suspect]
     Dosage: 120MG PER DAY
     Route: 048
  6. FOLIC ACID [Suspect]
     Route: 048
  7. ASPIRIN [Suspect]
     Route: 048
  8. ALCOHOL [Suspect]

REACTIONS (7)
  - CARDIOVASCULAR DISORDER [None]
  - DEPRESSED LEVEL OF CONSCIOUSNESS [None]
  - FALL [None]
  - HYPOTENSION [None]
  - INTENTIONAL OVERDOSE [None]
  - METABOLIC ACIDOSIS [None]
  - URINE OUTPUT DECREASED [None]
